FAERS Safety Report 9081446 (Version 1)
Quarter: 2013Q1

REPORT INFORMATION
  Report Type: Report from Study
  Country: US (occurrence: US)
  Receive Date: 20130130
  Receipt Date: 20130130
  Transmission Date: 20140127
  Serious: No
  Sender: FDA-Public Use
  Company Number: US-ABBOTT-12P-163-0967851-00

PATIENT
  Sex: Male
  Weight: 65.83 kg

DRUGS (10)
  1. HUMIRA 40 MG/0.8 ML PEN [Suspect]
     Indication: CROHN^S DISEASE
     Dosage: ONCE
     Dates: start: 200806, end: 200806
  2. HUMIRA 40 MG/0.8 ML PEN [Suspect]
     Dosage: ONCE
     Dates: start: 200806, end: 200806
  3. HUMIRA 40 MG/0.8 ML PEN [Suspect]
     Route: 058
     Dates: start: 200806, end: 201012
  4. HUMIRA 40 MG/0.8 ML PEN [Suspect]
     Dates: start: 201012, end: 201204
  5. HUMIRA 40 MG/0.8 ML PEN [Suspect]
     Dosage: ONCE
     Dates: start: 201204, end: 201204
  6. HUMIRA 40 MG/0.8 ML PEN [Suspect]
     Dosage: ONCE
     Dates: start: 201204, end: 201204
  7. HUMIRA 40 MG/0.8 ML PEN [Suspect]
     Dates: start: 201204
  8. PREDNISONE [Concomitant]
     Indication: CROHN^S DISEASE
  9. DICYCLOMINE [Concomitant]
     Indication: CROHN^S DISEASE
  10. VSL 3 [Concomitant]
     Indication: CROHN^S DISEASE

REACTIONS (2)
  - Pyoderma gangrenosum [Not Recovered/Not Resolved]
  - Crohn^s disease [Not Recovered/Not Resolved]
